FAERS Safety Report 7763867-5 (Version None)
Quarter: 2011Q3

REPORT INFORMATION
  Report Type: 
  Country: None (occurrence: None)
  Receive Date: 20110919
  Receipt Date: 20110909
  Transmission Date: 20111222
  Serious: Yes (Other)
  Sender: FDA-Public Use
  Company Number: 7081104

PATIENT
  Age: 32 Year
  Sex: Female

DRUGS (5)
  1. MONTELUCANT (MONTELUKAST) [Concomitant]
  2. LEVOTHYROXINE SODIUM [Suspect]
     Indication: THYROID HORMONE REPLACEMENT THERAPY
     Dosage: 125 MCG
  3. SALMETEROL (SALMETEROL) [Concomitant]
  4. ALBUTEROL SULFATE [Concomitant]
  5. BUDEONIDE (BUDESONIDE) [Concomitant]

REACTIONS (2)
  - ABORTION SPONTANEOUS [None]
  - MATERNAL EXPOSURE DURING PREGNANCY [None]
